FAERS Safety Report 5040028-4 (Version None)
Quarter: 2006Q2

REPORT INFORMATION
  Report Type: 
  Country: None (occurrence: None)
  Receive Date: 20060601
  Receipt Date: 20060105
  Transmission Date: 20061013
  Serious: No
  Sender: FDA-Public Use
  Company Number: 2006PV006649

PATIENT
  Age: 65 Year
  Sex: Female
  Weight: 86.1834 kg

DRUGS (7)
  1. BYETTA [Suspect]
     Indication: DIABETES MELLITUS NON-INSULIN-DEPENDENT
     Dosage: 5 + 10 MCG/BID/ SC
     Route: 058
     Dates: start: 20051216, end: 20051229
  2. BYETTA [Suspect]
     Indication: DIABETES MELLITUS NON-INSULIN-DEPENDENT
     Dosage: 5 + 10 MCG/BID/ SC
     Route: 058
     Dates: start: 20051230, end: 20060101
  3. BYETTA [Suspect]
     Indication: DIABETES MELLITUS NON-INSULIN-DEPENDENT
     Dosage: 5 + 10 MCG/BID/ SC
     Route: 058
     Dates: start: 20060102
  4. ACTOS [Concomitant]
  5. METFORMIN [Concomitant]
  6. DIOVAN [Concomitant]
  7. LIPITOR [Concomitant]

REACTIONS (1)
  - BLOOD GLUCOSE INCREASED [None]
